FAERS Safety Report 9335564 (Version 4)
Quarter: 2013Q3

REPORT INFORMATION
  Report Type: Spontaneous
  Country: BE (occurrence: BE)
  Receive Date: 20130605
  Receipt Date: 20130805
  Transmission Date: 20140515
  Serious: Yes (Hospitalization)
  Sender: FDA-Public Use
  Company Number: BE-GLAXOSMITHKLINE-B0897205A

PATIENT
  Age: 41 Year
  Sex: Male
  Weight: 75 kg

DRUGS (7)
  1. AVAMYS [Suspect]
     Indication: CHRONIC SINUSITIS
     Dosage: 50UG TWICE PER DAY
     Route: 045
     Dates: start: 20110715, end: 20120131
  2. NORVIR [Suspect]
     Indication: HIV INFECTION
     Dosage: 100MG PER DAY
     Route: 065
     Dates: start: 20110930
  3. REYATAZ [Concomitant]
     Indication: HIV INFECTION
     Dosage: 300MG PER DAY
     Route: 048
     Dates: start: 20100601
  4. TRUVADA [Concomitant]
     Indication: HIV INFECTION
     Route: 048
     Dates: start: 20050615
  5. EMTRICITABINE [Concomitant]
     Indication: HIV INFECTION
     Route: 065
  6. TENOFOVIR [Concomitant]
     Indication: HIV INFECTION
     Route: 065
  7. STEROIDS [Concomitant]

REACTIONS (23)
  - Cushing^s syndrome [Recovered/Resolved]
  - Polyneuropathy [Recovering/Resolving]
  - Adrenal insufficiency [Recovered/Resolved]
  - Herpes simplex meningitis [Unknown]
  - Weight decreased [Unknown]
  - Pain [Unknown]
  - Fatigue [Unknown]
  - Asthenia [Unknown]
  - Erectile dysfunction [Unknown]
  - Rash macular [Unknown]
  - Blood glucose increased [Unknown]
  - CD4 lymphocytes decreased [Unknown]
  - Amyotrophy [Unknown]
  - Drug interaction [Unknown]
  - Cushingoid [Unknown]
  - Disturbance in attention [Unknown]
  - Gait disturbance [Unknown]
  - Urinary tract disorder [Unknown]
  - Blood corticotrophin decreased [Unknown]
  - Blood immunoglobulin G decreased [Unknown]
  - Overdose [Unknown]
  - Blood immunoglobulin G decreased [Recovered/Resolved]
  - Rash [Unknown]
